FAERS Safety Report 16896927 (Version 4)
Quarter: 2020Q2

REPORT INFORMATION
  Report Type: Report from Study
  Country: US (occurrence: US)
  Receive Date: 20191009
  Receipt Date: 20200625
  Transmission Date: 20200713
  Serious: No
  Sender: FDA-Public Use
  Company Number: US-LUPIN PHARMACEUTICALS INC.-2019-05378

PATIENT
  Sex: Female
  Weight: 52.61 kg

DRUGS (1)
  1. SECNIDAZOLE [Suspect]
     Active Substance: SECNIDAZOLE
     Indication: BACTERIAL VAGINOSIS
     Dosage: 2 GRAM, SINGLE
     Route: 048
     Dates: start: 20190801, end: 20190801

REACTIONS (2)
  - Normal newborn [Unknown]
  - Exposure during pregnancy [Unknown]
